FAERS Safety Report 9196091 (Version 1)
Quarter: 2013Q1

REPORT INFORMATION
  Report Type: Spontaneous
  Country: US (occurrence: None)
  Receive Date: 20120705
  Receipt Date: 20120705
  Transmission Date: 20140127
  Serious: Yes (Hospitalization, Other)
  Sender: FDA-Public Use
  Company Number: US-CYPR-2012-000038

PATIENT
  Age: 58 Year
  Sex: Female
  Weight: 96.16 kg

DRUGS (2)
  1. CLOPIDOGREL [Suspect]
     Indication: ANTIPLATELET THERAPY
     Dates: start: 20110329, end: 20120322
  2. ASPIRIN [Suspect]
     Route: 048
     Dates: start: 20100422

REACTIONS (1)
  - Acute myocardial infarction [None]
